FAERS Safety Report 15836941 (Version 2)
Quarter: 2019Q1

REPORT INFORMATION
  Report Type: Spontaneous
  Country: CA (occurrence: CA)
  Receive Date: 20190117
  Receipt Date: 20190311
  Transmission Date: 20190417
  Serious: Yes (Hospitalization)
  Sender: FDA-Public Use
  Company Number: CA-MYLANLABS-2019M1003280

PATIENT
  Age: 52 Year
  Sex: Female

DRUGS (5)
  1. CRINONE [Suspect]
     Active Substance: PROGESTERONE
     Indication: MENOPAUSE
     Dosage: UNK
  2. CLARITIN-D NOS [Concomitant]
     Active Substance: LORATADINE\PSEUDOEPHEDRINE SULFATE
     Indication: PRODUCT USED FOR UNKNOWN INDICATION
     Dosage: UNK
     Route: 048
  3. ESTRADIOL. [Suspect]
     Active Substance: ESTRADIOL
     Indication: PRODUCT USED FOR UNKNOWN INDICATION
     Dosage: UNK
  4. BUDESONIDE. [Suspect]
     Active Substance: BUDESONIDE
     Indication: PRODUCT USED FOR UNKNOWN INDICATION
     Dosage: UNK
  5. PRASTERONE [Suspect]
     Active Substance: PRASTERONE
     Indication: PRODUCT USED FOR UNKNOWN INDICATION
     Dosage: UNK
     Route: 067

REACTIONS (9)
  - Head discomfort [Unknown]
  - Butterfly rash [Unknown]
  - Rash [Unknown]
  - Periorbital oedema [Unknown]
  - Photosensitivity reaction [Unknown]
  - Feeling hot [Unknown]
  - Swelling face [Unknown]
  - Cellulitis [Unknown]
  - Tinnitus [Unknown]
